FAERS Safety Report 6037171-X (Version None)
Quarter: 2009Q1

REPORT INFORMATION
  Report Type: 
  Country: None (occurrence: None)
  Receive Date: 20090114
  Receipt Date: 20090107
  Transmission Date: 20090719
  Serious: Yes (Disabling)
  Sender: FDA-Public Use
  Company Number: US-MERCK-0809USA01525

PATIENT
  Age: 43 Year
  Sex: Female
  Weight: 49 kg

DRUGS (2)
  1. FOSAMAX [Suspect]
     Route: 048
     Dates: start: 20060101, end: 20060801
  2. ACTONEL [Suspect]
     Route: 065
     Dates: end: 20060101

REACTIONS (30)
  - ADVERSE DRUG REACTION [None]
  - BACK INJURY [None]
  - BACK PAIN [None]
  - BURSITIS [None]
  - CACHEXIA [None]
  - COSTOCHONDRITIS [None]
  - DIZZINESS [None]
  - EXCORIATION [None]
  - FALL [None]
  - HEADACHE [None]
  - INJURY [None]
  - JAUNDICE [None]
  - JAW DISORDER [None]
  - JOINT CONTRACTURE [None]
  - JOINT DISLOCATION [None]
  - LIGAMENT SPRAIN [None]
  - LIMB INJURY [None]
  - MOOD SWINGS [None]
  - MOUTH ULCERATION [None]
  - NECK PAIN [None]
  - NEURITIS [None]
  - OCCIPITAL NEURALGIA [None]
  - OSTEOARTHRITIS [None]
  - OSTEONECROSIS [None]
  - RENAL PAIN [None]
  - RESORPTION BONE INCREASED [None]
  - RIB FRACTURE [None]
  - STOMATITIS [None]
  - TENDONITIS [None]
  - TONGUE GEOGRAPHIC [None]
